FAERS Safety Report 8774230 (Version 2)
Quarter: 2012Q4

REPORT INFORMATION
  Report Type: 
  Country: US (occurrence: US)
  Receive Date: 20120907
  Receipt Date: 20121009
  Transmission Date: 20130627
  Serious: No
  Sender: FDA-Public Use
  Company Number: US-VERTEX PHARMACEUTICAL INC.-2012-020248

PATIENT

DRUGS (6)
  1. INCIVEK [Suspect]
     Indication: HEPATITIS C
     Dosage: 750 mg, tid
     Route: 048
     Dates: start: 20120723
  2. COPEGUS [Suspect]
     Indication: HEPATITIS C
     Dosage: 600 mg, bid
     Dates: start: 20120723
  3. PEGASYS [Suspect]
     Indication: HEPATITIS C
     Dosage: 180 mg, UNK
     Route: 058
     Dates: start: 20120723
  4. LISINOPRIL [Concomitant]
  5. FIORICET [Concomitant]
  6. NORCO [Concomitant]

REACTIONS (10)
  - Cyst [Unknown]
  - Loss of control of legs [Not Recovered/Not Resolved]
  - Fall [Unknown]
  - Visual acuity reduced [Not Recovered/Not Resolved]
  - Burning sensation [Not Recovered/Not Resolved]
  - Oedema peripheral [Not Recovered/Not Resolved]
  - Urticaria [Not Recovered/Not Resolved]
  - Rash macular [Not Recovered/Not Resolved]
  - Diarrhoea [Not Recovered/Not Resolved]
  - Pruritus generalised [Not Recovered/Not Resolved]
